FAERS Safety Report 14333834 (Version 1)
Quarter: 2017Q4

REPORT INFORMATION
  Report Type: Spontaneous
  Country: US (occurrence: US)
  Receive Date: 20171227
  Receipt Date: 20171227
  Transmission Date: 20180321
  Serious: No
  Sender: FDA-Public Use
  Company Number: None

PATIENT
  Sex: Female

DRUGS (1)
  1. COPAXONE [Suspect]
     Active Substance: GLATIRAMER ACETATE
     Route: 058
     Dates: start: 20070604, end: 20171222

REACTIONS (5)
  - Muscular weakness [None]
  - Dysgeusia [None]
  - Flushing [None]
  - Presyncope [None]
  - Therapy cessation [None]
